FAERS Safety Report 9982322 (Version 1)
Quarter: 2014Q1

REPORT INFORMATION
  Report Type: Report from Study
  Country: US (occurrence: US)
  Receive Date: 20140307
  Receipt Date: 20140307
  Transmission Date: 20141002
  Serious: No
  Sender: FDA-Public Use
  Company Number: US-ABBVIE-13P-163-1177302-00

PATIENT
  Sex: Female

DRUGS (9)
  1. HUMIRA [Suspect]
     Indication: RHEUMATOID ARTHRITIS
     Dates: start: 20131007
  2. HUMIRA [Suspect]
     Indication: PSORIATIC ARTHROPATHY
  3. METHOTREXATE [Concomitant]
     Indication: RHEUMATOID ARTHRITIS
  4. METHOTREXATE [Concomitant]
     Indication: PSORIATIC ARTHROPATHY
  5. MORPHINE [Concomitant]
     Indication: ARTHRALGIA
  6. MORPHINE [Concomitant]
     Indication: PSORIATIC ARTHROPATHY
  7. GABAPENTIN [Concomitant]
     Indication: ARTHRALGIA
  8. GABAPENTIN [Concomitant]
     Indication: PSORIATIC ARTHROPATHY
  9. EXCEDRIN ES [Concomitant]
     Indication: PAIN
     Dosage: 250/250 MG

REACTIONS (2)
  - Psoriasis [Not Recovered/Not Resolved]
  - Rash pustular [Not Recovered/Not Resolved]
